FAERS Safety Report 14848097 (Version 2)
Quarter: 2018Q2

REPORT INFORMATION
  Report Type: Spontaneous
  Country: JP (occurrence: JP)
  Receive Date: 20180504
  Receipt Date: 20180525
  Transmission Date: 20180711
  Serious: Yes (Death)
  Sender: FDA-Public Use
  Company Number: JP-FERRINGPH-2018FE02224

PATIENT

DRUGS (2)
  1. GONAX [Suspect]
     Active Substance: DEGARELIX
     Indication: PROSTATE CANCER
     Dosage: 80 MG, MONTHLY
     Route: 058
     Dates: start: 201804
  2. GONAX [Suspect]
     Active Substance: DEGARELIX
     Dosage: UNK
     Route: 058

REACTIONS (1)
  - Prostate cancer [Fatal]
